FAERS Safety Report 24297294 (Version 1)
Quarter: 2024Q3

REPORT INFORMATION
  Report Type: Spontaneous
  Country: AU (occurrence: None)
  Receive Date: 20240909
  Receipt Date: 20240909
  Transmission Date: 20241016
  Serious: Yes (Life-Threatening, Other)
  Sender: ASTRAZENECA
  Company Number: 2024A201660

PATIENT
  Sex: Female

DRUGS (11)
  1. ESOMEPRAZOLE [Suspect]
     Active Substance: ESOMEPRAZOLE
  2. SEROTONIN [Suspect]
     Active Substance: SEROTONIN
  3. AMLODIPINE BESYLATE [Suspect]
     Active Substance: AMLODIPINE BESYLATE
  4. ESCITALOPRAM OXALATE [Suspect]
     Active Substance: ESCITALOPRAM OXALATE
  5. ACETAMINOPHEN [Suspect]
     Active Substance: ACETAMINOPHEN
  6. FLUOXETINE HYDROCHLORIDE [Suspect]
     Active Substance: FLUOXETINE HYDROCHLORIDE
  7. MOCLOBEMIDE [Suspect]
     Active Substance: MOCLOBEMIDE
  8. TOFACITINIB CITRATE [Suspect]
     Active Substance: TOFACITINIB CITRATE
  9. TRAMADOL HYDROCHLORIDE [Suspect]
     Active Substance: TRAMADOL HYDROCHLORIDE
  10. VALSARTAN [Suspect]
     Active Substance: VALSARTAN
  11. VENLAFAXINE HYDROCHLORIDE [Suspect]
     Active Substance: VENLAFAXINE HYDROCHLORIDE

REACTIONS (8)
  - Acute kidney injury [Unknown]
  - Metabolic acidosis [Unknown]
  - Suicide attempt [Unknown]
  - Drug interaction [Unknown]
  - Intentional overdose [Unknown]
  - Physical deconditioning [Unknown]
  - Serotonin syndrome [Unknown]
  - Major depression [Unknown]
